FAERS Safety Report 4825123-4 (Version None)
Quarter: 2005Q4

REPORT INFORMATION
  Report Type: 
  Country: None (occurrence: None)
  Receive Date: 20051109
  Receipt Date: 20051109
  Transmission Date: 20060501
  Serious: Yes (Other)
  Sender: FDA-Public Use
  Company Number: None

PATIENT
  Age: 49 Year
  Sex: Female
  Weight: 82.1011 kg

DRUGS (2)
  1. DEMEROL [Suspect]
     Indication: ENDOMETRIAL ABLATION
     Dosage: 25 MG IVP 1040; 25MG IVP 1100
     Route: 042
  2. DEMEROL [Suspect]
     Indication: UTERINE DILATION AND CURETTAGE
     Dosage: 25 MG IVP 1040; 25MG IVP 1100
     Route: 042

REACTIONS (2)
  - PRURITUS [None]
  - SKIN DISCOLOURATION [None]
